FAERS Safety Report 7414563-5 (Version None)
Quarter: 2011Q2

REPORT INFORMATION
  Report Type: 
  Country: None (occurrence: None)
  Receive Date: 20110414
  Receipt Date: 20110408
  Transmission Date: 20111010
  Serious: Yes (Other)
  Sender: FDA-Public Use
  Company Number: ES-BRISTOL-MYERS SQUIBB COMPANY-15652431

PATIENT
  Age: 47 Year
  Sex: Male

DRUGS (1)
  1. CETUXIMAB [Suspect]
     Indication: LARYNGEAL CANCER
     Dosage: 1DF=400MG/M SUP(2)
     Route: 042

REACTIONS (2)
  - DERMATITIS ACNEIFORM [None]
  - PSORIASIS [None]
